FAERS Safety Report 24547669 (Version 2)
Quarter: 2024Q4

REPORT INFORMATION
  Report Type: Report from Study
  Country: JP (occurrence: JP)
  Receive Date: 20241025
  Receipt Date: 20241105
  Transmission Date: 20250114
  Serious: Yes (Other)
  Sender: JOHNSON AND JOHNSON
  Company Number: JP-JNJFOC-20241066363

PATIENT
  Sex: Male

DRUGS (4)
  1. RILPIVIRINE [Suspect]
     Active Substance: RILPIVIRINE
     Indication: HIV infection
     Dosage: DOSE UNKNOWN
     Route: 030
  2. VOCABRIA [Suspect]
     Active Substance: CABOTEGRAVIR SODIUM
     Indication: HIV infection
     Dosage: DOSE UNKNOWN
     Route: 030
  3. EMTRICITABINE\TENOFOVIR ALAFENAMIDE FUMARATE [Concomitant]
     Active Substance: EMTRICITABINE\TENOFOVIR ALAFENAMIDE FUMARATE
     Indication: HIV infection
     Dosage: DOSE UNKNOWN
     Route: 048
  4. DOLUTEGRAVIR SODIUM [Concomitant]
     Active Substance: DOLUTEGRAVIR SODIUM
     Indication: HIV infection
     Dosage: DOSE UNKNOWN?20 WEEKS
     Route: 048

REACTIONS (1)
  - Acute hepatitis B [Unknown]
